FAERS Safety Report 7834696-9 (Version None)
Quarter: 2011Q4

REPORT INFORMATION
  Report Type: 
  Country: None (occurrence: None)
  Receive Date: 20111024
  Receipt Date: 20111010
  Transmission Date: 20120403
  Serious: Yes (Hospitalization)
  Sender: FDA-Public Use
  Company Number: US-SANOFI-AVENTIS-2011SA066141

PATIENT
  Age: 32 Year
  Sex: Female

DRUGS (5)
  1. DIAZEPAM [Suspect]
     Indication: OVERDOSE
     Route: 040
  2. DIAZEPAM [Suspect]
     Dosage: DOSE- 5 MG/H.
     Route: 065
  3. EPINEPHRINE [Concomitant]
  4. DIAZEPAM [Suspect]
     Route: 040
  5. HYDROXYCHLOROQUINE SULFATE [Suspect]
     Indication: SUICIDE ATTEMPT
     Route: 065

REACTIONS (6)
  - BLOOD PHOSPHORUS DECREASED [None]
  - HYPOKALAEMIA [None]
  - HYPOTENSION [None]
  - TOXICITY TO VARIOUS AGENTS [None]
  - ELECTROCARDIOGRAM ABNORMAL [None]
  - SEDATION [None]
